FAERS Safety Report 5356604-5 (Version None)
Quarter: 2007Q2

REPORT INFORMATION
  Report Type: 
  Country: None (occurrence: None)
  Receive Date: 20070614
  Receipt Date: 20070607
  Transmission Date: 20071010
  Serious: Yes (Death, Hospitalization)
  Sender: FDA-Public Use
  Company Number: PHBS2007ES09416

PATIENT
  Age: 84 Year
  Sex: Male

DRUGS (5)
  1. LESCOL [Suspect]
     Indication: HYPERCHOLESTEROLAEMIA
     Dosage: 80 MG/DAY
     Route: 048
     Dates: start: 20040101, end: 20070106
  2. ENALAPRIL MALEATE [Concomitant]
  3. ADIRO [Concomitant]
     Dosage: UNK, UNK
  4. OMEPRAZOLE [Concomitant]
  5. HUMULINE NPH [Concomitant]
     Dosage: 100 UI/ML 6 PLU PR

REACTIONS (4)
  - BLOOD CREATININE INCREASED [None]
  - DEATH [None]
  - RENAL IMPAIRMENT [None]
  - RHABDOMYOLYSIS [None]
